FAERS Safety Report 10082570 (Version 2)
Quarter: 2014Q2

REPORT INFORMATION
  Report Type: Spontaneous
  Country: US (occurrence: US)
  Receive Date: 20140416
  Receipt Date: 20140520
  Transmission Date: 20141212
  Serious: No
  Sender: FDA-Public Use
  Company Number: US-TEVA-476006USA

PATIENT
  Age: 22 Year
  Sex: Female
  Weight: 54.93 kg

DRUGS (5)
  1. PARAGARD 380A [Suspect]
     Indication: CONTRACEPTION
     Route: 015
     Dates: start: 20140304, end: 20140409
  2. GABAPENTIN [Concomitant]
     Indication: PRODUCT USED FOR UNKNOWN INDICATION
  3. TOPIRAMATE [Concomitant]
     Indication: CONVULSION
  4. TRILEPTAL [Concomitant]
     Indication: CONVULSION
  5. LEVETIRACETAM [Concomitant]
     Indication: PRODUCT USED FOR UNKNOWN INDICATION

REACTIONS (1)
  - Device expulsion [Recovered/Resolved]
